FAERS Safety Report 4766221-3 (Version None)
Quarter: 2005Q3

REPORT INFORMATION
  Report Type: 
  Country: None (occurrence: None)
  Receive Date: 20050909
  Receipt Date: 20050825
  Transmission Date: 20060218
  Serious: Yes (Hospitalization)
  Sender: FDA-Public Use
  Company Number: B0314540A

PATIENT
  Sex: Male
  Weight: 7.5 kg

DRUGS (2)
  1. PAXIL [Suspect]
     Dosage: 40 MG/PER DAY
  2. OLANZAPINE [Concomitant]

REACTIONS (13)
  - AGITATION NEONATAL [None]
  - ALPHA HAEMOLYTIC STREPTOCOCCAL INFECTION [None]
  - APGAR SCORE LOW [None]
  - BLOOD SODIUM DECREASED [None]
  - C-REACTIVE PROTEIN INCREASED [None]
  - CAESAREAN SECTION [None]
  - DRUG EXPOSURE DURING PREGNANCY [None]
  - DRUG WITHDRAWAL SYNDROME NEONATAL [None]
  - FOETAL DISTRESS SYNDROME [None]
  - HYPERTONIA NEONATAL [None]
  - HYPOGLYCAEMIA NEONATAL [None]
  - OPISTHOTONUS [None]
  - SALIVARY HYPERSECRETION [None]
